FAERS Safety Report 6180059-4 (Version None)
Quarter: 2009Q2

REPORT INFORMATION
  Report Type: 
  Country: None (occurrence: None)
  Receive Date: 20090505
  Receipt Date: 20090430
  Transmission Date: 20091009
  Serious: Yes (Hospitalization)
  Sender: FDA-Public Use
  Company Number: SE-ABBOTT-09P-150-0570993-00

PATIENT
  Age: 70 Year
  Sex: Female

DRUGS (4)
  1. HUMIRA [Suspect]
     Indication: RHEUMATOID ARTHRITIS
     Route: 058
     Dates: start: 20070507, end: 20080223
  2. TENORMIN [Concomitant]
     Indication: DRUG USE FOR UNKNOWN INDICATION
  3. BETOLVEX [Concomitant]
     Indication: DRUG USE FOR UNKNOWN INDICATION
  4. ORUDIS RETARD PROLONGED RELEASE [Concomitant]
     Indication: DRUG USE FOR UNKNOWN INDICATION

REACTIONS (2)
  - GASTROINTESTINAL CARCINOMA [None]
  - PANCREATIC CARCINOMA [None]
